FAERS Safety Report 7769459-6 (Version None)
Quarter: 2011Q3

REPORT INFORMATION
  Report Type: 
  Country: None (occurrence: None)
  Receive Date: 20110922
  Receipt Date: 20110519
  Transmission Date: 20111222
  Serious: No
  Sender: FDA-Public Use
  Company Number: US-ASTRAZENECA-2011SE31039

PATIENT
  Age: 64 Year
  Sex: Female
  Weight: 63.5 kg

DRUGS (5)
  1. SEROQUEL [Suspect]
     Route: 048
  2. ESTROGENIC SUBSTANCE [Concomitant]
  3. SEROQUEL [Suspect]
     Indication: MAJOR DEPRESSION
     Route: 048
  4. OMEPRAZOLE [Concomitant]
  5. EXFORGE [Concomitant]
     Indication: HYPERTENSION

REACTIONS (6)
  - CRYING [None]
  - DRUG INEFFECTIVE FOR UNAPPROVED INDICATION [None]
  - DRUG DOSE OMISSION [None]
  - NERVOUSNESS [None]
  - INSOMNIA [None]
  - DRUG INEFFECTIVE [None]
